FAERS Safety Report 18255641 (Version 1)
Quarter: 2020Q3

REPORT INFORMATION
  Report Type: Spontaneous
  Country: US (occurrence: US)
  Receive Date: 20200910
  Receipt Date: 20200910
  Transmission Date: 20201103
  Serious: Yes (Hospitalization, Other)
  Sender: FDA-Public Use
  Company Number: US-NOVOPROD-751024

PATIENT
  Age: 75 Year
  Sex: Male

DRUGS (4)
  1. NOVOLIN N [Suspect]
     Active Substance: INSULIN HUMAN
     Dosage: DOSE INCREASED WITH HIGH SUGARS
     Route: 058
  2. NOVOLIN R [Suspect]
     Active Substance: INSULIN HUMAN
     Dosage: DOSE INCREASED WITH HIGH SUGARS
     Route: 058
  3. NOVOLIN N [Suspect]
     Active Substance: INSULIN HUMAN
     Indication: DIABETES MELLITUS
     Dosage: TWICE A DAY AND AS NEEDED
     Route: 058
     Dates: start: 1990
  4. NOVOLIN R [Suspect]
     Active Substance: INSULIN HUMAN
     Indication: DIABETES MELLITUS
     Dosage: TWICE A DAY AND AS NEEDED
     Route: 058
     Dates: start: 1990

REACTIONS (5)
  - Limb discomfort [Unknown]
  - Blood glucose increased [Unknown]
  - Coronary artery occlusion [Unknown]
  - Weight increased [Unknown]
  - Myocardial infarction [Unknown]
